FAERS Safety Report 14730308 (Version 2)
Quarter: 2018Q4

REPORT INFORMATION
  Report Type: Spontaneous
  Country: GB (occurrence: GB)
  Receive Date: 20180406
  Receipt Date: 20181218
  Transmission Date: 20190204
  Serious: Yes (Other)
  Sender: FDA-Public Use
  Company Number: GB-TEVA-2018-GB-879120

PATIENT
  Age: 74 Year
  Sex: Female
  Weight: 45 kg

DRUGS (7)
  1. HYLO-TEAR [Concomitant]
     Dosage: USE AS DIRECTED
     Dates: start: 20170714
  2. COLECALCIFEROL [Concomitant]
     Active Substance: CHOLECALCIFEROL
     Dosage: 1 DOSAGE FORMS DAILY;
     Dates: start: 20170714
  3. AMLODIPINE [Suspect]
     Active Substance: AMLODIPINE BESYLATE
     Dates: start: 20180207
  4. AMITRIPTYLINE HYDROCHLORIDE. [Concomitant]
     Active Substance: AMITRIPTYLINE HYDROCHLORIDE
     Indication: FLATULENCE
     Dosage: TAKE 1-2 AT NIGHT
     Dates: start: 20170714
  5. DOXAZOSIN [Concomitant]
     Active Substance: DOXAZOSIN\DOXAZOSIN MESYLATE
     Dosage: 1 DOSAGE FORMS DAILY;
     Dates: start: 20180123
  6. LOSARTAN. [Concomitant]
     Active Substance: LOSARTAN
     Dosage: 2 DOSAGE FORMS DAILY;
     Dates: start: 20170714
  7. AQUEOUS CREAM [Concomitant]
     Dosage: USE AS SOAP SUBSTITUTE
     Dates: start: 20170714

REACTIONS (2)
  - Peripheral swelling [Unknown]
  - Periorbital oedema [Recovered/Resolved]

NARRATIVE: CASE EVENT DATE: 20180207
